FAERS Safety Report 5410494-0 (Version None)
Quarter: 2007Q3

REPORT INFORMATION
  Report Type: 
  Country: None (occurrence: None)
  Receive Date: 20070810
  Receipt Date: 20070122
  Transmission Date: 20080115
  Serious: No
  Sender: FDA-Public Use
  Company Number: A0636564A

PATIENT
  Age: 61 Year
  Sex: Female

DRUGS (5)
  1. PAXIL [Suspect]
     Indication: LYMPH NODE PAIN
     Route: 048
     Dates: start: 20010101
  2. SEIZURE MEDICATION [Concomitant]
  3. DECONGESTANT [Concomitant]
  4. DURATUSS [Concomitant]
  5. SUDAFED 12 HOUR [Concomitant]

REACTIONS (5)
  - BALANCE DISORDER [None]
  - DYSKINESIA [None]
  - FEAR [None]
  - INSOMNIA [None]
  - LOGORRHOEA [None]
